FAERS Safety Report 19462822 (Version 1)
Quarter: 2021Q2

REPORT INFORMATION
  Report Type: Spontaneous
  Country: DE (occurrence: DE)
  Receive Date: 20210625
  Receipt Date: 20210625
  Transmission Date: 20210717
  Serious: Yes (Other)
  Sender: FDA-Public Use
  Company Number: DE-BAYER-2021-162571

PATIENT
  Age: 45 Year
  Sex: Female

DRUGS (1)
  1. JAYDESS [Suspect]
     Active Substance: LEVONORGESTREL
     Dosage: 14 ?G PER DAY CONTINUOUSLY
     Route: 015
     Dates: start: 202002

REACTIONS (3)
  - Visual impairment [Not Recovered/Not Resolved]
  - Optic neuritis [Not Recovered/Not Resolved]
  - Vision blurred [Not Recovered/Not Resolved]
